FAERS Safety Report 15893542 (Version 1)
Quarter: 2019Q1

REPORT INFORMATION
  Report Type: Spontaneous
  Country: US (occurrence: US)
  Receive Date: 20190131
  Receipt Date: 20190131
  Transmission Date: 20190417
  Serious: No
  Sender: FDA-Public Use
  Company Number: US-CELGENEUS-USA-20190106102

PATIENT
  Sex: Female

DRUGS (2)
  1. NAB-PACLITAXEL [Suspect]
     Active Substance: PACLITAXEL
     Indication: METASTASES TO PERITONEUM
     Dosage: (35175 MG/M2/DOSE)
     Route: 041
     Dates: start: 200904, end: 201411
  2. NAB-PACLITAXEL [Suspect]
     Active Substance: PACLITAXEL
     Indication: OFF LABEL USE

REACTIONS (3)
  - Unevaluable event [Unknown]
  - Metastases to peritoneum [Unknown]
  - Peripheral motor neuropathy [Recovering/Resolving]
